FAERS Safety Report 8476415-1 (Version None)
Quarter: 2012Q2

REPORT INFORMATION
  Report Type: 
  Country: None (occurrence: None)
  Receive Date: 20120628
  Receipt Date: 20120626
  Transmission Date: 20120825
  Serious: Yes (Congenital Anomaly)
  Sender: FDA-Public Use
  Company Number: GXKR2012DE002075

PATIENT

DRUGS (3)
  1. INFLUENZA VACCINE [Concomitant]
     Route: 064
  2. CITALOPRAM HYDROBROMIDE [Suspect]
     Dosage: MATERNAL DOSE: 20 MG/D/ DOSAGE REDUCED TO 10MG/D
     Route: 064
  3. FOLIC ACID [Concomitant]
     Dosage: MATERNAL DOSE: 0.4 MG/D/ ALSO PRECONCEPTIONALLY
     Route: 064

REACTIONS (9)
  - OESOPHAGEAL ATRESIA [None]
  - ANAL ATRESIA [None]
  - RECTOURETHRAL FISTULA [None]
  - ATRIAL SEPTAL DEFECT [None]
  - TRACHEO-OESOPHAGEAL FISTULA [None]
  - SPINE MALFORMATION [None]
  - HYDROCELE [None]
  - VESICOURETERIC REFLUX [None]
  - FOETAL EXPOSURE DURING PREGNANCY [None]
